FAERS Safety Report 9308508 (Version 1)
Quarter: 2013Q2

REPORT INFORMATION
  Report Type: Spontaneous
  Country: TW (occurrence: TW)
  Receive Date: 20130524
  Receipt Date: 20130524
  Transmission Date: 20140414
  Serious: Yes (Hospitalization)
  Sender: FDA-Public Use
  Company Number: TW-ROCHE-1228060

PATIENT
  Sex: Female

DRUGS (2)
  1. AVASTIN [Suspect]
     Indication: BREAST CANCER METASTATIC
     Route: 042
     Dates: start: 201303, end: 201305
  2. TAXOTERE [Suspect]
     Indication: BREAST CANCER METASTATIC
     Route: 065
     Dates: start: 201303, end: 201305

REACTIONS (1)
  - Coma [Not Recovered/Not Resolved]
